FAERS Safety Report 9148800 (Version 1)
Quarter: 2013Q1

REPORT INFORMATION
  Report Type: Spontaneous
  Country: US (occurrence: None)
  Receive Date: 20130227
  Receipt Date: 20130227
  Transmission Date: 20140127
  Serious: Yes (Hospitalization, Other)
  Sender: FDA-Public Use
  Company Number: None

PATIENT
  Age: 40 Year
  Sex: Male
  Weight: 73 kg

DRUGS (8)
  1. VANCOMYCIN 1 GRAM HOSPIRA [Suspect]
     Dosage: 1.5 GRAMS Q12H IV
     Route: 042
     Dates: start: 20121205, end: 20121212
  2. PIPERACILLIN-TAZOBACTAM (NO PREF. NAME) [Suspect]
     Dosage: 3.375 GRAMS Q6H IV
     Route: 042
     Dates: start: 20121205, end: 20121212
  3. INSULIN GLARGINE [Concomitant]
  4. INSULIN LISPRO [Concomitant]
  5. OXYCODONE [Concomitant]
  6. METFORMIN [Concomitant]
  7. PANTOPRAZOLE TPN [Concomitant]
  8. ELECTROLYTE [Concomitant]

REACTIONS (2)
  - Wound infection [None]
  - Enterobacter infection [None]
